FAERS Safety Report 10201043 (Version 1)
Quarter: 2014Q2

REPORT INFORMATION
  Report Type: Spontaneous
  Country: BR (occurrence: BR)
  Receive Date: 20140528
  Receipt Date: 20140528
  Transmission Date: 20141212
  Serious: Yes (Hospitalization)
  Sender: FDA-Public Use
  Company Number: BR-ASTRAZENECA-2014SE35232

PATIENT
  Age: 719 Month
  Sex: Male

DRUGS (2)
  1. CRESTOR [Suspect]
     Route: 048
     Dates: start: 2010
  2. BRILINTA [Suspect]
     Route: 048
     Dates: start: 20140515

REACTIONS (2)
  - Coronary artery occlusion [Recovered/Resolved]
  - Nausea [Not Recovered/Not Resolved]
